FAERS Safety Report 9165482 (Version 1)
Quarter: 2013Q1

REPORT INFORMATION
  Report Type: Spontaneous
  Country: US (occurrence: None)
  Receive Date: 20130301
  Receipt Date: 20130301
  Transmission Date: 20140127
  Serious: Yes (Hospitalization)
  Sender: FDA-Public Use
  Company Number: 2013-0807

PATIENT
  Age: 54 Year
  Sex: Female

DRUGS (1)
  1. SOMATULINE DEPOT INJECTION (90MG) (SOMATULINE SR) (LANREOTIDE) (LANREOTIDE ACETATE) [Suspect]
     Indication: ACROMEGALY
     Dosage: 90 MG (90MG, 1 IN 28 D), UNKNOWN
     Dates: start: 20120420

REACTIONS (1)
  - Loss of consciousness [None]
